FAERS Safety Report 6111028-8 (Version None)
Quarter: 2009Q1

REPORT INFORMATION
  Report Type: 
  Country: None (occurrence: None)
  Receive Date: 20090310
  Receipt Date: 20090310
  Transmission Date: 20090719
  Serious: No
  Sender: FDA-Public Use
  Company Number: None

PATIENT
  Sex: Female
  Weight: 61.2356 kg

DRUGS (4)
  1. FUROSEMIDE [Suspect]
     Indication: OEDEMA PERIPHERAL
     Dosage: 40 MG QD ORAL
     Route: 048
  2. OMEGA FISH OIL [Concomitant]
  3. ASPIRIN [Concomitant]
  4. VYTORIN [Concomitant]

REACTIONS (1)
  - DRUG INEFFECTIVE [None]
